FAERS Safety Report 9469961 (Version 3)
Quarter: 2013Q3

REPORT INFORMATION
  Report Type: Report from Study
  Country: US (occurrence: US)
  Receive Date: 20130822
  Receipt Date: 20130910
  Transmission Date: 20140515
  Serious: Yes (Life-Threatening, Hospitalization)
  Sender: FDA-Public Use
  Company Number: PHEH2013US016700

PATIENT
  Age: 74 Year
  Sex: Male

DRUGS (2)
  1. AFINITOR [Suspect]
     Indication: CARCINOID TUMOUR OF THE STOMACH
     Dosage: 10 MG, QD
     Route: 048
     Dates: start: 20130703, end: 20130803
  2. AFINITOR [Suspect]
     Indication: OFF LABEL USE

REACTIONS (7)
  - Terminal state [Unknown]
  - Fluid intake reduced [Unknown]
  - Aphasia [Unknown]
  - Neoplasm [Not Recovered/Not Resolved]
  - Metastases to liver [Not Recovered/Not Resolved]
  - Dehydration [Not Recovered/Not Resolved]
  - Drug ineffective [Unknown]
